FAERS Safety Report 8346625-2 (Version None)
Quarter: 2012Q2

REPORT INFORMATION
  Report Type: 
  Country: None (occurrence: None)
  Receive Date: 20120509
  Receipt Date: 20120504
  Transmission Date: 20120825
  Serious: Yes (Death)
  Sender: FDA-Public Use
  Company Number: PHHY2012BR038862

PATIENT
  Sex: Male

DRUGS (4)
  1. EXELON [Suspect]
     Indication: DEMENTIA ALZHEIMER'S TYPE
     Dosage: 9 MG, UNK
     Route: 062
  2. PERINDOPRIL ERBUMINE [Concomitant]
  3. LASIX [Concomitant]
  4. SIMVASTATIN [Concomitant]

REACTIONS (4)
  - AGITATION [None]
  - GASTROENTERITIS [None]
  - INFECTION [None]
  - INSOMNIA [None]
